FAERS Safety Report 15575076 (Version 1)
Quarter: 2018Q4

REPORT INFORMATION
  Report Type: Spontaneous
  Country: CN (occurrence: CN)
  Receive Date: 20181101
  Receipt Date: 20181101
  Transmission Date: 20190205
  Serious: Yes (Death, Other)
  Sender: FDA-Public Use
  Company Number: CN-SA-2018SA289753

PATIENT
  Age: 55 Year
  Sex: Male

DRUGS (6)
  1. OTERACIL POTASSIUM [Concomitant]
     Active Substance: OTERACIL POTASSIUM
     Indication: NEOPLASM MALIGNANT
     Dosage: 60 MG, BID (ON D1 AND D8)
     Route: 048
  2. TEGAFUR [Concomitant]
     Active Substance: TEGAFUR
     Indication: NEOPLASM MALIGNANT
     Dosage: UNK
  3. XELODA [Concomitant]
     Active Substance: CAPECITABINE
     Dosage: 1.5 G, BID
  4. OXALIPLATIN. [Suspect]
     Active Substance: OXALIPLATIN
     Dosage: 200MG
     Route: 065
     Dates: start: 201602
  5. GEMCITABINE [Concomitant]
     Active Substance: GEMCITABINE\GEMCITABINE HYDROCHLORIDE
     Indication: NEOPLASM MALIGNANT
     Dosage: 1.6 G
     Route: 042
  6. GIMERACIL [Concomitant]
     Active Substance: GIMERACIL
     Indication: NEOPLASM MALIGNANT
     Dosage: UNK

REACTIONS (7)
  - Hepatic failure [Fatal]
  - Drug ineffective [Unknown]
  - Infection [Fatal]
  - Gastrointestinal haemorrhage [Fatal]
  - Intestinal obstruction [Fatal]
  - Electrolyte imbalance [Fatal]
  - Renal failure [Fatal]

NARRATIVE: CASE EVENT DATE: 20160220
